FAERS Safety Report 19870219 (Version 2)
Quarter: 2021Q4

REPORT INFORMATION
  Report Type: Spontaneous
  Country: JP (occurrence: JP)
  Receive Date: 20210922
  Receipt Date: 20211001
  Transmission Date: 20220304
  Serious: Yes (Other)
  Sender: FDA-Public Use
  Company Number: JP-MLMSERVICE-20210812-3047903-1

PATIENT
  Age: 68 Year
  Sex: Male
  Weight: 61.7 kg

DRUGS (5)
  1. METHYLPREDNISOLONE [Suspect]
     Active Substance: METHYLPREDNISOLONE
     Indication: Cryoglobulinaemia
     Dosage: 500 MG (FOR 3 CONSECUTIVE DAYS STARTING ON DAY 27)
     Route: 048
     Dates: start: 20170712, end: 20170715
  2. METHYLPREDNISOLONE [Suspect]
     Active Substance: METHYLPREDNISOLONE
     Indication: Glomerulonephritis
     Dosage: 8 MG
     Route: 048
     Dates: start: 2017
  3. METHYLPREDNISOLONE [Suspect]
     Active Substance: METHYLPREDNISOLONE
     Dosage: 6 MG
     Route: 048
     Dates: start: 2017
  4. PREDNISOLONE [Suspect]
     Active Substance: PREDNISOLONE
     Indication: Glomerulonephritis
     Dosage: TAPERED
     Dates: start: 201707
  5. PREDNISOLONE [Suspect]
     Active Substance: PREDNISOLONE
     Indication: Cryoglobulinaemia
     Dosage: 30 MG
     Route: 048
     Dates: start: 20170715

REACTIONS (1)
  - Hyperglycaemia [Recovered/Resolved]

NARRATIVE: CASE EVENT DATE: 20170712
